FAERS Safety Report 8884650 (Version 2)
Quarter: 2012Q4

REPORT INFORMATION
  Report Type: 
  Country: US (occurrence: US)
  Receive Date: 20121102
  Receipt Date: 20121109
  Transmission Date: 20130627
  Serious: Yes (Other)
  Sender: FDA-Public Use
  Company Number: US-PFIZER INC-2012271864

PATIENT
  Age: 56 Year
  Sex: Female

DRUGS (1)
  1. PROTONIX [Suspect]
     Dosage: 40 mg, daily
     Route: 048

REACTIONS (6)
  - Exostosis [Unknown]
  - Arthritis [Unknown]
  - Asthma [Unknown]
  - Perfume sensitivity [Unknown]
  - Smoke sensitivity [Unknown]
  - Dyspnoea [Unknown]
